FAERS Safety Report 8494204 (Version 2)
Quarter: 2013Q2

REPORT INFORMATION
  Report Type: Spontaneous
  Country: US (occurrence: None)
  Receive Date: 20120322
  Receipt Date: 20120621
  Transmission Date: 20140414
  Serious: Yes (Hospitalization)
  Sender: FDA-Public Use
  Company Number: UTC-015603

PATIENT
  Age: 67 Year
  Sex: Female
  Weight: 60.91 kg

DRUGS (3)
  1. TYVASO [Suspect]
     Indication: PULMONARY HYPERTENSION
     Dosage: 288 MCG (72 MCG, 4 IN 1 D), INHALATION
     Route: 055
     Dates: start: 20090921
  2. REVATIO [Concomitant]
  3. DIURETICS (DIURETICS) [Concomitant]

REACTIONS (2)
  - PULMONARY HYPERTENSION [None]
  - ABDOMINAL PAIN [None]
